FAERS Safety Report 7948762-0 (Version None)
Quarter: 2011Q4

REPORT INFORMATION
  Report Type: 
  Country: None (occurrence: None)
  Receive Date: 20111130
  Receipt Date: 20111121
  Transmission Date: 20120403
  Serious: Yes (Other)
  Sender: FDA-Public Use
  Company Number: CA-JNJFOC-20111110167

PATIENT
  Sex: Male
  Weight: 79.3 kg

DRUGS (4)
  1. REMICADE [Suspect]
     Dosage: SECOND INFUSION.
     Dates: start: 20111121
  2. PREDNISONE TAB [Suspect]
     Indication: PRODUCT USED FOR UNKNOWN INDICATION
     Route: 048
  3. IMURAN [Concomitant]
     Route: 048
  4. REMICADE [Suspect]
     Indication: COLITIS ULCERATIVE
     Dosage: LOADING DOSE.
     Dates: start: 20111107

REACTIONS (2)
  - INJURY [None]
  - LIMB INJURY [None]
